FAERS Safety Report 11964686 (Version 2)
Quarter: 2016Q2

REPORT INFORMATION
  Report Type: Spontaneous
  Country: US (occurrence: US)
  Receive Date: 20160127
  Receipt Date: 20160425
  Transmission Date: 20160815
  Serious: Yes (Other)
  Sender: FDA-Public Use
  Company Number: US-GLENMARK PHARMACEUTICALS INC, USA.-2015GMK020611

PATIENT

DRUGS (2)
  1. NORETHINDRONE AND ETHINYL ESTRADIOL TABLETS USP, 0.5 MG/0.0025 MG [Suspect]
     Active Substance: ETHINYL ESTRADIOL\NORETHINDRONE ACETATE
     Indication: ANXIETY
     Dosage: 1 DF, OD
     Route: 048
  2. METOPROLOL. [Concomitant]
     Active Substance: METOPROLOL
     Indication: HYPERTENSION
     Dosage: UNK

REACTIONS (2)
  - Off label use [Unknown]
  - Embolism [Not Recovered/Not Resolved]

NARRATIVE: CASE EVENT DATE: 201509
